FAERS Safety Report 12475008 (Version 1)
Quarter: 2016Q2

REPORT INFORMATION
  Report Type: Spontaneous
  Country: US (occurrence: US)
  Receive Date: 20160617
  Receipt Date: 20160617
  Transmission Date: 20160815
  Serious: Yes (Hospitalization, Other)
  Sender: FDA-Public Use
  Company Number: US-009507513-1606USA004818

PATIENT
  Sex: Female

DRUGS (1)
  1. NUVARING [Suspect]
     Active Substance: ETHINYL ESTRADIOL\ETONOGESTREL
     Indication: MENORRHAGIA
     Dosage: 1 RING/ 3 WEEKS, STRENGTH REPORTED AS 0.015/0.12 (UNITS NOT PROVIDED)
     Route: 067

REACTIONS (2)
  - Product use issue [Unknown]
  - Pulmonary embolism [Recovered/Resolved]
